FAERS Safety Report 5601293-5 (Version None)
Quarter: 2008Q1

REPORT INFORMATION
  Report Type: 
  Country: None (occurrence: None)
  Receive Date: 20080124
  Receipt Date: 20080117
  Transmission Date: 20080703
  Serious: Yes (Hospitalization)
  Sender: FDA-Public Use
  Company Number: B0500998A

PATIENT
  Age: 53 Year
  Sex: Female
  Weight: 49 kg

DRUGS (9)
  1. FLOLAN [Suspect]
     Indication: COLLAGEN DISORDER
     Route: 042
     Dates: start: 20040622
  2. BERAPROST SODIUM [Concomitant]
     Route: 048
  3. PREDNISOLONE [Concomitant]
     Route: 065
  4. CANDESARTAN CILEXETIL [Concomitant]
     Route: 048
  5. ASPIRIN [Concomitant]
     Route: 048
  6. ITOROL [Concomitant]
     Route: 048
  7. PREDONINE [Concomitant]
     Route: 048
  8. ALENDRONATE SODIUM [Concomitant]
     Route: 048
  9. VITAMEDIN [Concomitant]
     Route: 048

REACTIONS (5)
  - ABASIA [None]
  - ALOPECIA [None]
  - ANOREXIA [None]
  - BLOOD PRESSURE DECREASED [None]
  - DIARRHOEA [None]
